FAERS Safety Report 7621448-8 (Version None)
Quarter: 2011Q3

REPORT INFORMATION
  Report Type: 
  Country: None (occurrence: None)
  Receive Date: 20110719
  Receipt Date: 20110609
  Transmission Date: 20111222
  Serious: No
  Sender: FDA-Public Use
  Company Number: US-BAUSCH-2011BL003768

PATIENT
  Age: 81 Year
  Sex: Male
  Weight: 86 kg

DRUGS (3)
  1. NAMENDA [Concomitant]
     Indication: DEMENTIA ALZHEIMER'S TYPE
  2. RAZYDINE [Concomitant]
     Indication: DEMENTIA ALZHEIMER'S TYPE
  3. LATANOPROST [Suspect]
     Indication: GLAUCOMA
     Route: 047
     Dates: start: 20110501, end: 20110501

REACTIONS (2)
  - INSTILLATION SITE PAIN [None]
  - FOREIGN BODY SENSATION IN EYES [None]
